FAERS Safety Report 24447997 (Version 1)
Quarter: 2024Q4

REPORT INFORMATION
  Report Type: Spontaneous
  Country: VE (occurrence: VE)
  Receive Date: 20241016
  Receipt Date: 20241016
  Transmission Date: 20250115
  Serious: Yes (Hospitalization)
  Sender: NOVARTIS
  Company Number: VE-002147023-NVSC2022VE001747

PATIENT
  Sex: Female

DRUGS (2)
  1. GLIVEC [Suspect]
     Active Substance: IMATINIB MESYLATE
     Indication: Chronic myeloid leukaemia
     Dosage: 400 MG, QD (4 X 100 MG)
     Route: 065
  2. ASPIRIN [Suspect]
     Active Substance: ASPIRIN
     Indication: Osteoarthritis
     Dosage: UNK
     Route: 065

REACTIONS (13)
  - Gastrointestinal haemorrhage [Unknown]
  - Fluid retention [Unknown]
  - Gastric ulcer [Unknown]
  - Large intestinal ulcer [Unknown]
  - Ill-defined disorder [Unknown]
  - Discomfort [Unknown]
  - White blood cell count increased [Unknown]
  - Platelet count increased [Unknown]
  - Nausea [Unknown]
  - Vomiting [Unknown]
  - Diarrhoea [Unknown]
  - Product availability issue [Unknown]
  - Osteoarthritis [Unknown]
